FAERS Safety Report 10219669 (Version 1)
Quarter: 2014Q2

REPORT INFORMATION
  Report Type: Spontaneous
  Country: US (occurrence: None)
  Receive Date: 20140603
  Receipt Date: 20140603
  Transmission Date: 20141212
  Serious: Yes (Hospitalization, Other)
  Sender: FDA-Public Use
  Company Number: 2014-19347

PATIENT
  Age: 89 Year
  Sex: Male

DRUGS (12)
  1. EYLEA (ALFIBERCEPT) INJECTION [Suspect]
     Indication: CHOROIDAL NEOVASCULARISATION
     Route: 031
     Dates: start: 20131010
  2. LUTEIN /01638501/ (XANTOFYL) [Concomitant]
  3. VITAMIN D3 (COLECALCIFEROL) [Concomitant]
  4. VITAMIN C /00008001/ (ASCORBIC ACID) [Concomitant]
  5. OSCAL /00514701/ (CALCITRIOL) [Concomitant]
  6. GLUCOSAMINE (GLUCOSAMINE) [Concomitant]
  7. LISINOPRIL /00894002/ (LISINOPRIL DIHYDRATE) [Concomitant]
  8. VITAMIN B12 /00056201/ (CYANOCOCALAMIN) [Concomitant]
  9. NEXIUM /01479302/ (ESOMEPRAZOLE MAGNESIUM) [Concomitant]
  10. PREDNISONE (PREDNISONE) [Concomitant]
  11. OMEGA3 /01333901/ (FISH OIL, TOCOPHEROL) [Concomitant]
  12. ZOCOR (SIMVASTATIN) [Concomitant]

REACTIONS (2)
  - Choroidal neovascularisation [None]
  - Blindness [None]
